FAERS Safety Report 14605679 (Version 5)
Quarter: 2022Q2

REPORT INFORMATION
  Report Type: Spontaneous
  Country: US (occurrence: US)
  Receive Date: 20180306
  Receipt Date: 20220609
  Transmission Date: 20220720
  Serious: No
  Sender: FDA-Public Use
  Company Number: US-INTERCEPT-PMOCA2018000225

PATIENT
  Sex: Female

DRUGS (21)
  1. OCALIVA [Suspect]
     Active Substance: OBETICHOLIC ACID
     Indication: Primary biliary cholangitis
     Dosage: 5 MILLIGRAM, QD
     Route: 048
     Dates: start: 20170625
  2. OCALIVA [Suspect]
     Active Substance: OBETICHOLIC ACID
     Dosage: 10 MILLIGRAM, 2X/WK
     Route: 048
     Dates: start: 201906, end: 202007
  3. OCALIVA [Suspect]
     Active Substance: OBETICHOLIC ACID
     Dosage: 5 MILLIGRAM, QD
     Route: 048
     Dates: start: 20200409
  4. OCALIVA [Suspect]
     Active Substance: OBETICHOLIC ACID
     Dosage: 5 MILLIGRAM, QD
     Route: 048
     Dates: start: 202007
  5. URSODIOL [Suspect]
     Active Substance: URSODIOL
     Indication: Product used for unknown indication
     Dosage: UNK
     Dates: start: 2014
  6. ESTRADIOL [Concomitant]
     Active Substance: ESTRADIOL
  7. NORTRIPTYLINE [Concomitant]
     Active Substance: NORTRIPTYLINE
     Dosage: 10 MG, UNK
  8. DICYCLOMINE [Concomitant]
     Active Substance: DICYCLOMINE HYDROCHLORIDE
  9. OMEPRAZOLE [Concomitant]
     Active Substance: OMEPRAZOLE
  10. BUSPIRONE [Concomitant]
     Active Substance: BUSPIRONE HYDROCHLORIDE
     Dosage: 100 PERCENT, UNK
  11. SPIRONOLACTONE [Concomitant]
     Active Substance: SPIRONOLACTONE
     Dosage: 100 PERCENT, UNK
  12. MIRALAX [Concomitant]
     Active Substance: POLYETHYLENE GLYCOL 3350
     Dosage: UNK UNK, QHS
  13. DOK [Concomitant]
     Active Substance: DOCUSATE SODIUM
     Dosage: 240 MILLIGRAM, UNK
  14. HYDROXYZINE HYDROCHLORIDE [Concomitant]
     Active Substance: HYDROXYZINE HYDROCHLORIDE
     Dosage: 10 MILLIGRAM, UNK
  15. VITAMIN D [Concomitant]
     Active Substance: VITAMIN D NOS
     Dosage: 400 INTERNATIONAL UNIT, UNK
  16. COVARYX [Concomitant]
     Active Substance: ESTROGENS, ESTERIFIED\METHYLTESTOSTERONE
     Dosage: 1.25-2.25 MILLIGRAM, UNK
  17. RESTORIL [Concomitant]
     Active Substance: TEMAZEPAM
     Dosage: 15 MILLIGRAM, UNK
  18. AZITHROMYCIN [Concomitant]
     Active Substance: AZITHROMYCIN
  19. VALACYCLOVIR                       /01269701/ [Concomitant]
  20. XIIDRA [Concomitant]
     Active Substance: LIFITEGRAST
  21. ZOLPIDEM [Concomitant]
     Active Substance: ZOLPIDEM TARTRATE

REACTIONS (5)
  - Epistaxis [Not Recovered/Not Resolved]
  - Dysphonia [Not Recovered/Not Resolved]
  - Laboratory test abnormal [Unknown]
  - Pruritus [Not Recovered/Not Resolved]
  - Off label use [Recovered/Resolved]

NARRATIVE: CASE EVENT DATE: 20180101
